FAERS Safety Report 14761680 (Version 1)
Quarter: 2018Q2

REPORT INFORMATION
  Report Type: Spontaneous
  Country: FR (occurrence: FR)
  Receive Date: 20180416
  Receipt Date: 20180416
  Transmission Date: 20180711
  Serious: Yes (Hospitalization)
  Sender: FDA-Public Use
  Company Number: FR-CONCORDIA PHARMACEUTICALS INC.-E2B_00011097

PATIENT
  Age: 39 Year
  Sex: Female

DRUGS (3)
  1. DESOXYN [Suspect]
     Active Substance: METHAMPHETAMINE HYDROCHLORIDE
     Indication: BRONCHITIS
     Route: 048
     Dates: start: 20180123, end: 20180129
  2. ZECLAR 500 MG, COMPRIM? PELLICUL? [Suspect]
     Active Substance: CLARITHROMYCIN
     Indication: BRONCHITIS
     Route: 048
     Dates: start: 20180123, end: 20180129
  3. TOPLEXIL NOS [Suspect]
     Active Substance: ACETAMINOPHEN\GUAIFENESIN\OXOMEMAZINE\SODIUM BENZOATE
     Indication: BRONCHITIS
     Route: 048
     Dates: start: 20180123, end: 20180129

REACTIONS (1)
  - Persecutory delusion [Recovered/Resolved]

NARRATIVE: CASE EVENT DATE: 20180129
